FAERS Safety Report 19966644 (Version 3)
Quarter: 2024Q2

REPORT INFORMATION
  Report Type: Spontaneous
  Country: SE (occurrence: SE)
  Receive Date: 20211019
  Receipt Date: 20240422
  Transmission Date: 20240716
  Serious: Yes (Other)
  Sender: FDA-Public Use
  Company Number: SE-CELLTRION INC.-2021SE010908

PATIENT

DRUGS (8)
  1. RITUXIMAB [Suspect]
     Active Substance: RITUXIMAB
     Indication: Post transplant lymphoproliferative disorder
     Dosage: QW (FOUR CONSEUTIVE WEEKS)/WEEKLY DOSES OF RITUXIMAB DURING FOUR CONSECUTIVE WEEKS
     Route: 065
     Dates: start: 2020
  2. RITUXIMAB [Suspect]
     Active Substance: RITUXIMAB
     Indication: Post transplant lymphoproliferative disorder
  3. PREDNISOLONE [Suspect]
     Active Substance: PREDNISOLONE
     Indication: Immunosuppression
     Dosage: UNK
  4. PREDNISOLONE [Suspect]
     Active Substance: PREDNISOLONE
     Indication: Immunosuppressant drug therapy
     Dosage: UNK UNK, UNKNOWN
     Route: 065
     Dates: start: 201906
  5. TACROLIMUS [Suspect]
     Active Substance: TACROLIMUS
     Indication: Immunosuppression
  6. TACROLIMUS [Suspect]
     Active Substance: TACROLIMUS
     Indication: Immunosuppressant drug therapy
     Dosage: UNK UNK, UNKNOWN
     Route: 065
     Dates: start: 201906
  7. TRAMETINIB [Suspect]
     Active Substance: TRAMETINIB
     Indication: Adjuvant therapy
     Dosage: UNK
  8. TRAMETINIB [Suspect]
     Active Substance: TRAMETINIB
     Indication: Hepatic angiosarcoma
     Dosage: UNK UNK, UNKNOWN
     Route: 065

REACTIONS (11)
  - Decreased immune responsiveness [Unknown]
  - Polymerase chain reaction positive [Unknown]
  - Adenovirus infection [Unknown]
  - B-lymphocyte count decreased [Unknown]
  - COVID-19 [Unknown]
  - COVID-19 [Not Recovered/Not Resolved]
  - Post-acute COVID-19 syndrome [Unknown]
  - Rhinovirus infection [Unknown]
  - Vaccine virus shedding [Unknown]
  - Off label use [Unknown]
  - Product use in unapproved indication [Unknown]

NARRATIVE: CASE EVENT DATE: 20200101
